FAERS Safety Report 21377105 (Version 9)
Quarter: 2025Q3

REPORT INFORMATION
  Report Type: Report from Study
  Country: GB (occurrence: GB)
  Receive Date: 20220926
  Receipt Date: 20250708
  Transmission Date: 20251020
  Serious: Yes (Hospitalization, Other)
  Sender: NOVARTIS
  Company Number: GB-NOVARTISPH-NVSC2021GB065857

PATIENT
  Age: 43 Year
  Sex: Female

DRUGS (7)
  1. COSENTYX [Suspect]
     Active Substance: SECUKINUMAB
     Indication: Psoriatic arthropathy
     Route: 065
     Dates: start: 20200801
  2. COSENTYX [Suspect]
     Active Substance: SECUKINUMAB
     Dosage: 300 MG, QMO
     Route: 058
     Dates: start: 202009
  3. COSENTYX [Suspect]
     Active Substance: SECUKINUMAB
     Dosage: 150 MG, QMO
     Route: 058
  4. COSENTYX [Suspect]
     Active Substance: SECUKINUMAB
     Dosage: 300 MG, QMO
     Route: 065
  5. COSENTYX [Suspect]
     Active Substance: SECUKINUMAB
     Dosage: 300 MG, BIW (FORTNIGHTLY)
     Route: 065
  6. IBUPROFEN [Concomitant]
     Active Substance: IBUPROFEN
     Indication: Joint swelling
     Route: 065
  7. IBUPROFEN [Concomitant]
     Active Substance: IBUPROFEN
     Indication: Arthralgia

REACTIONS (11)
  - Injection site pain [Not Recovered/Not Resolved]
  - Wrong technique in device usage process [Not Recovered/Not Resolved]
  - Incorrect dose administered [Not Recovered/Not Resolved]
  - Psoriatic arthropathy [Recovered/Resolved with Sequelae]
  - Musculoskeletal chest pain [Recovered/Resolved]
  - Abdominal pain [Recovered/Resolved]
  - Pain in extremity [Recovered/Resolved]
  - Discomfort [Recovered/Resolved]
  - Device defective [Unknown]
  - Pain [Recovered/Resolved with Sequelae]
  - Swelling [Recovered/Resolved with Sequelae]

NARRATIVE: CASE EVENT DATE: 20210315
